FAERS Safety Report 8501580-7 (Version None)
Quarter: 2012Q3

REPORT INFORMATION
  Report Type: 
  Country: None (occurrence: None)
  Receive Date: 20120710
  Receipt Date: 20120625
  Transmission Date: 20120928
  Serious: Yes (Other)
  Sender: FDA-Public Use
  Company Number: ES-WATSON-2012-11865

PATIENT
  Age: 52 Year
  Sex: Female

DRUGS (1)
  1. FENTANYL CITRATE [Suspect]
     Indication: BREAKTHROUGH PAIN
     Dosage: 200 MCG EVERY 12 HOURS AS NEEDED
     Route: 002

REACTIONS (5)
  - EUPHORIC MOOD [None]
  - DRUG ABUSE [None]
  - OFF LABEL USE [None]
  - DEPENDENCE [None]
  - WITHDRAWAL SYNDROME [None]
